FAERS Safety Report 20444568 (Version 1)
Quarter: 2022Q1

REPORT INFORMATION
  Report Type: Spontaneous
  Country: CN (occurrence: CN)
  Receive Date: 20220208
  Receipt Date: 20220208
  Transmission Date: 20220424
  Serious: No
  Sender: FDA-Public Use
  Company Number: CN-LUPIN PHARMACEUTICALS INC.-2022-01498

PATIENT
  Age: 30 Year
  Sex: Female

DRUGS (6)
  1. METHYLPREDNISOLONE [Suspect]
     Active Substance: METHYLPREDNISOLONE
     Indication: Systemic scleroderma
     Dosage: 4 MG, QD
     Route: 065
  2. FENTANYL [Suspect]
     Active Substance: FENTANYL
     Indication: Spinal anaesthesia
     Dosage: 15 MG
     Route: 008
  3. ASPIRIN [Suspect]
     Active Substance: ASPIRIN
     Indication: Systemic scleroderma
     Dosage: 100 MG, QD
     Route: 065
  4. URSODIOL [Suspect]
     Active Substance: URSODIOL
     Indication: Cholestasis of pregnancy
     Dosage: 1 GRAM, QD
     Route: 061
  5. OXYTOCIN [Suspect]
     Active Substance: OXYTOCIN
     Indication: Labour induction
     Dosage: OXYTOCIN INFUSION WAS ADMINISTERED THROUGH DOUBLE-BALLOON DEVICE
     Route: 065
  6. BUPIVACAINE [Suspect]
     Active Substance: BUPIVACAINE
     Indication: Spinal anaesthesia
     Dosage: 2.5 MG
     Route: 037

REACTIONS (3)
  - Maternal exposure during pregnancy [Unknown]
  - Maternal exposure during delivery [Recovered/Resolved]
  - Normal newborn [Unknown]
